FAERS Safety Report 11633037 (Version 2)
Quarter: 2016Q1

REPORT INFORMATION
  Report Type: Spontaneous
  Country: US (occurrence: US)
  Receive Date: 20151015
  Receipt Date: 20160129
  Transmission Date: 20160525
  Serious: Yes (Other)
  Sender: FDA-Public Use
  Company Number: US-PFIZER INC-2015331099

PATIENT
  Age: 78 Year
  Sex: Female
  Weight: 54 kg

DRUGS (3)
  1. IBRANCE [Suspect]
     Active Substance: PALBOCICLIB
     Dosage: 125 MG, CYCLIC (DAY 1-21 Q 28 DAYS)
     Route: 048
     Dates: start: 20150729
  2. IBRANCE [Suspect]
     Active Substance: PALBOCICLIB
     Indication: BREAST CANCER
     Dosage: 125 MG, CYCLIC (DAY 1-21 Q 28 DAYS)
     Route: 048
     Dates: start: 20150729
  3. IBRANCE [Suspect]
     Active Substance: PALBOCICLIB
     Dosage: 125 MG, CYCLIC (DAY 1-21 Q 28 DAYS)
     Route: 048
     Dates: start: 20150729

REACTIONS (2)
  - Aphthous ulcer [Unknown]
  - Cardiac disorder [Unknown]

NARRATIVE: CASE EVENT DATE: 2015
